FAERS Safety Report 9219576 (Version 1)
Quarter: 2013Q2

REPORT INFORMATION
  Report Type: Spontaneous
  Country: US (occurrence: None)
  Receive Date: 20130408
  Receipt Date: 20130408
  Transmission Date: 20140414
  Serious: Yes (Other)
  Sender: FDA-Public Use
  Company Number: None

PATIENT
  Age: 46 Year
  Sex: Female
  Weight: 75.3 kg

DRUGS (1)
  1. CIPRO [Suspect]
     Indication: SINUSITIS
     Dosage: 500MG  2XDAILY  PO
     Route: 048
     Dates: start: 20101015, end: 20101016

REACTIONS (30)
  - Migraine [None]
  - Musculoskeletal pain [None]
  - Arthralgia [None]
  - Arthralgia [None]
  - Arthralgia [None]
  - Arthralgia [None]
  - Back pain [None]
  - Back pain [None]
  - Arthralgia [None]
  - Neck pain [None]
  - Tooth fracture [None]
  - Dental caries [None]
  - Vision blurred [None]
  - Insomnia [None]
  - Blood cholesterol increased [None]
  - Tremor [None]
  - Memory impairment [None]
  - Disturbance in attention [None]
  - Feeling abnormal [None]
  - Tinnitus [None]
  - Depression [None]
  - Weight decreased [None]
  - Decreased appetite [None]
  - Pruritus [None]
  - Paraesthesia [None]
  - Neuropathy peripheral [None]
  - Gastrooesophageal reflux disease [None]
  - Oesophageal spasm [None]
  - Feeling abnormal [None]
  - Tendon pain [None]
